FAERS Safety Report 7993530-7 (Version None)
Quarter: 2011Q4

REPORT INFORMATION
  Report Type: 
  Country: None (occurrence: None)
  Receive Date: 20111219
  Receipt Date: 20111213
  Transmission Date: 20120403
  Serious: Yes (Congenital Anomaly, Other)
  Sender: FDA-Public Use
  Company Number: US-RB-035466-11

PATIENT

DRUGS (3)
  1. SUBOXONE [Suspect]
     Indication: PRODUCT USED FOR UNKNOWN INDICATION
     Dosage: 8/2 1 BID
     Route: 064
     Dates: start: 20100804, end: 20100907
  2. MARIJUANA [Suspect]
     Indication: PRODUCT USED FOR UNKNOWN INDICATION
     Route: 064
  3. LEXAPRO [Suspect]
     Indication: PRODUCT USED FOR UNKNOWN INDICATION
     Dosage: 20MG QD
     Route: 064
     Dates: start: 20100804, end: 20100907

REACTIONS (2)
  - CLEFT PALATE [None]
  - FOETAL EXPOSURE DURING PREGNANCY [None]
